FAERS Safety Report 7031577-8 (Version None)
Quarter: 2010Q4

REPORT INFORMATION
  Report Type: 
  Country: None (occurrence: None)
  Receive Date: 20101006
  Receipt Date: 20101006
  Transmission Date: 20110411
  Serious: No
  Sender: FDA-Public Use
  Company Number: None

PATIENT
  Age: 39 Year
  Sex: Male
  Weight: 83.9154 kg

DRUGS (2)
  1. OXYCODONE HCL [Suspect]
     Indication: ARTHRALGIA
     Dosage: 5MG 4-6 HOURS PO
     Route: 048
     Dates: start: 20101004, end: 20101004
  2. OXYCODONE HCL [Suspect]
     Indication: MYALGIA
     Dosage: 5MG 4-6 HOURS PO
     Route: 048
     Dates: start: 20101004, end: 20101004

REACTIONS (3)
  - DRUG INEFFECTIVE [None]
  - NO THERAPEUTIC RESPONSE [None]
  - PRODUCT SUBSTITUTION ISSUE [None]
